FAERS Safety Report 7554682-6 (Version None)
Quarter: 2011Q2

REPORT INFORMATION
  Report Type: 
  Country: None (occurrence: None)
  Receive Date: 20110617
  Receipt Date: 20110608
  Transmission Date: 20111010
  Serious: Yes (Hospitalization)
  Sender: FDA-Public Use
  Company Number: RO-JNJFOC-20110512053

PATIENT
  Age: 59 Year
  Sex: Female
  Weight: 90 kg

DRUGS (9)
  1. METHOTREXATE [Concomitant]
     Indication: RHEUMATOID ARTHRITIS
     Route: 030
     Dates: start: 20101012
  2. MELOXICAM [Concomitant]
     Indication: PAIN
     Route: 048
     Dates: start: 20100510
  3. PANTOPRAZOLE [Concomitant]
     Indication: DYSPEPSIA
     Dates: start: 20100510, end: 20110531
  4. GOLIMUMAB [Suspect]
     Indication: RHEUMATOID ARTHRITIS
     Route: 058
     Dates: start: 20101119, end: 20110516
  5. RISEDRONIC ACID [Concomitant]
     Indication: OSTEOPOROSIS
     Route: 048
     Dates: start: 20101012
  6. KETOROLAC TROMETHAMINE [Concomitant]
     Indication: PAIN
     Route: 048
     Dates: start: 20110510, end: 20110531
  7. GABAPENTIN [Concomitant]
     Indication: PAIN
     Route: 048
     Dates: start: 20100510, end: 20110531
  8. SULFASALAZINE [Concomitant]
     Indication: RHEUMATOID ARTHRITIS
     Route: 048
     Dates: start: 20101012
  9. FOLIC ACID [Concomitant]
     Indication: ANAEMIA PROPHYLAXIS
     Route: 048
     Dates: start: 20101012

REACTIONS (2)
  - PYREXIA [None]
  - PANCYTOPENIA [None]
